FAERS Safety Report 5978158-2 (Version None)
Quarter: 2008Q4

REPORT INFORMATION
  Report Type: 
  Country: None (occurrence: None)
  Receive Date: 20081126
  Receipt Date: 20081113
  Transmission Date: 20090506
  Serious: Yes (Death)
  Sender: FDA-Public Use
  Company Number: MC200800536

PATIENT
  Age: 67 Year
  Sex: Female

DRUGS (6)
  1. ANGIOMAX [Suspect]
     Indication: PERCUTANEOUS CORONARY INTERVENTION
     Dosage: 0.75 MG/KG, BOLUS, INTRAVENOUS, 1.75 MG/KG, HR, INHALATION
     Route: 042
     Dates: start: 20080101, end: 20080101
  2. ANGIOMAX [Suspect]
     Indication: STENT PLACEMENT
     Dosage: 0.75 MG/KG, BOLUS, INTRAVENOUS, 1.75 MG/KG, HR, INHALATION
     Route: 042
     Dates: start: 20080101, end: 20080101
  3. ANGIOMAX [Suspect]
     Indication: PERCUTANEOUS CORONARY INTERVENTION
     Dosage: 0.75 MG/KG, BOLUS, INTRAVENOUS, 1.75 MG/KG, HR, INHALATION
     Route: 042
     Dates: start: 20080101, end: 20080101
  4. ANGIOMAX [Suspect]
     Indication: STENT PLACEMENT
     Dosage: 0.75 MG/KG, BOLUS, INTRAVENOUS, 1.75 MG/KG, HR, INHALATION
     Route: 042
     Dates: start: 20080101, end: 20080101
  5. ASPIRIN [Suspect]
     Dates: start: 20081101
  6. PLAVIX [Suspect]
     Dates: start: 20081101

REACTIONS (4)
  - DISSEMINATED INTRAVASCULAR COAGULATION [None]
  - HAEMORRHAGE [None]
  - RETROPERITONEAL HAEMORRHAGE [None]
  - VESSEL PUNCTURE SITE HAEMORRHAGE [None]
